FAERS Safety Report 5139201-6 (Version None)
Quarter: 2006Q4

REPORT INFORMATION
  Report Type: 
  Country: None (occurrence: None)
  Receive Date: 20061030
  Receipt Date: 20060710
  Transmission Date: 20070319
  Serious: Yes (Other)
  Sender: FDA-Public Use
  Company Number: US-GLAXOSMITHKLINE-A0611998A

PATIENT
  Age: 36 Year
  Sex: Male

DRUGS (1)
  1. ADVAIR HFA [Suspect]
     Indication: ASTHMA
     Dosage: 1PUFF TWICE PER DAY
     Route: 055
     Dates: start: 20060419, end: 20060525

REACTIONS (1)
  - MUSCLE SPASMS [None]
